FAERS Safety Report 6407042-5 (Version None)
Quarter: 2009Q4

REPORT INFORMATION
  Report Type: 
  Country: None (occurrence: None)
  Receive Date: 20091020
  Receipt Date: 20091009
  Transmission Date: 20100525
  Serious: Yes (Other)
  Sender: FDA-Public Use
  Company Number: PHHY2009GB44156

PATIENT
  Age: 44 Year
  Sex: Male

DRUGS (1)
  1. TEGRETOL RETARD [Suspect]
     Indication: EPILEPSY
     Dosage: 400 MG MOR. + 200 MG EVEN
     Route: 048

REACTIONS (2)
  - ASPIRATION [None]
  - CONDITION AGGRAVATED [None]
